FAERS Safety Report 6043172-8 (Version None)
Quarter: 2009Q1

REPORT INFORMATION
  Report Type: 
  Country: None (occurrence: None)
  Receive Date: 20090119
  Receipt Date: 20090109
  Transmission Date: 20090719
  Serious: Yes (Death)
  Sender: FDA-Public Use
  Company Number: AU-ROCHE-607203

PATIENT
  Sex: Female
  Weight: 110 kg

DRUGS (3)
  1. CEFTRIAXONE SODIUM [Suspect]
     Indication: DRUG USE FOR UNKNOWN INDICATION
     Route: 065
     Dates: start: 20080627, end: 20080627
  2. TIMENTIN [Suspect]
     Route: 042
     Dates: start: 20080623, end: 20080629
  3. CLINDAMYCIN HYDROCHLORIDE [Concomitant]
     Dates: start: 20080617, end: 20080623

REACTIONS (1)
  - TOXIC EPIDERMAL NECROLYSIS [None]
